FAERS Safety Report 4290797-6 (Version None)
Quarter: 2004Q1

REPORT INFORMATION
  Report Type: 
  Country: None (occurrence: None)
  Receive Date: 20040211
  Receipt Date: 20031007
  Transmission Date: 20041129
  Serious: No
  Sender: FDA-Public Use
  Company Number: US-GLAXOSMITHKLINE-A0429242A

PATIENT
  Age: 24 Year
  Sex: Female

DRUGS (2)
  1. PAXIL [Suspect]
     Indication: DEPRESSION
     Dosage: 10MG PER DAY
     Route: 048
     Dates: end: 20031004
  2. BIRTH CONTROL PILLS [Concomitant]

REACTIONS (3)
  - ASTHENIA [None]
  - DRUG WITHDRAWAL SYNDROME [None]
  - MUSCLE TWITCHING [None]
